FAERS Safety Report 11880971 (Version 1)
Quarter: 2015Q4

REPORT INFORMATION
  Report Type: Spontaneous
  Country: US (occurrence: US)
  Receive Date: 20151230
  Receipt Date: 20151230
  Transmission Date: 20160305
  Serious: Yes (Other)
  Sender: FDA-Public Use
  Company Number: US-HQ SPECIALTY-US-2015INT000715

PATIENT

DRUGS (3)
  1. ADRIAMYCIN [Suspect]
     Active Substance: DOXORUBICIN HYDROCHLORIDE
     Indication: MATERNAL EXPOSURE TIMING UNSPECIFIED
     Dosage: UNK DF, UNK
     Route: 064
  2. CYTOXAN [Suspect]
     Active Substance: CYCLOPHOSPHAMIDE
     Indication: MATERNAL EXPOSURE TIMING UNSPECIFIED
     Dosage: UNK DF, UNK
     Route: 064
  3. PACLITAXEL. [Suspect]
     Active Substance: PACLITAXEL
     Indication: MATERNAL EXPOSURE TIMING UNSPECIFIED
     Dosage: UNK DF, UNK
     Route: 064

REACTIONS (9)
  - Maternal drugs affecting foetus [None]
  - Low birth weight baby [Unknown]
  - Gastrooesophageal reflux disease [Unknown]
  - Neonatal respiratory distress syndrome [Unknown]
  - Premature baby [Unknown]
  - Constipation [Unknown]
  - Apnoea neonatal [Unknown]
  - Selective IgA immunodeficiency [Unknown]
  - Foetal exposure during pregnancy [Recovered/Resolved]
